FAERS Safety Report 6353983-7 (Version None)
Quarter: 2009Q3

REPORT INFORMATION
  Report Type: 
  Country: None (occurrence: None)
  Receive Date: 20090914
  Receipt Date: 20090901
  Transmission Date: 20100115
  Serious: Yes (Hospitalization)
  Sender: FDA-Public Use
  Company Number: AU-ELI_LILLY_AND_COMPANY-AU200905003014

PATIENT
  Sex: Male

DRUGS (8)
  1. CYMBALTA [Suspect]
     Indication: DEPRESSION
     Dosage: 60 MG, DAILY (1/D)
     Route: 048
     Dates: start: 20090428, end: 20090502
  2. DIURETICS [Concomitant]
     Dosage: UNK, UNKNOWN
     Route: 065
  3. QUINAPRIL [Concomitant]
     Indication: HYPERTENSION
     Dosage: 20 MG, UNKNOWN
     Route: 065
  4. PLAVIX [Concomitant]
     Indication: MYOCARDIAL ISCHAEMIA
     Dosage: 75 MG, UNKNOWN
     Route: 065
     Dates: end: 20090101
  5. PLAVIX [Concomitant]
     Dosage: 75 MG, UNKNOWN
     Route: 065
  6. DIGOXIN [Concomitant]
     Indication: ATRIAL FIBRILLATION
     Dosage: 250 UG, UNKNOWN
     Route: 065
  7. ISOSORBID MONONITRATE [Concomitant]
     Indication: MYOCARDIAL ISCHAEMIA
     Dosage: 30 MG, UNKNOWN
     Route: 065
  8. ZOLOFT [Concomitant]
     Indication: DEPRESSION
     Dosage: 50 MG, UNKNOWN
     Route: 065

REACTIONS (8)
  - ASTHENIA [None]
  - FALL [None]
  - HEAD INJURY [None]
  - HYPONATRAEMIA [None]
  - MALAISE [None]
  - SUBDURAL HAEMATOMA [None]
  - SUICIDAL IDEATION [None]
  - URINARY RETENTION [None]
